FAERS Safety Report 10975337 (Version 2)
Quarter: 2015Q2

REPORT INFORMATION
  Report Type: Spontaneous
  Country: US (occurrence: US)
  Receive Date: 20150401
  Receipt Date: 20150420
  Transmission Date: 20150821
  Serious: No
  Sender: FDA-Public Use
  Company Number: US-PFIZER INC-2015107207

PATIENT
  Age: 58 Year
  Sex: Female
  Weight: 66 kg

DRUGS (1)
  1. ATORVASTATIN CALCIUM. [Suspect]
     Active Substance: ATORVASTATIN CALCIUM
     Indication: BLOOD CHOLESTEROL INCREASED
     Dosage: UNK, 1X/DAY
     Dates: start: 2013, end: 2013

REACTIONS (5)
  - Muscle spasms [Recovered/Resolved]
  - Gait disturbance [Recovering/Resolving]
  - Joint stiffness [Recovering/Resolving]
  - Nausea [Recovered/Resolved]
  - Arthralgia [Recovering/Resolving]

NARRATIVE: CASE EVENT DATE: 2013
